FAERS Safety Report 12352416 (Version 3)
Quarter: 2016Q3

REPORT INFORMATION
  Report Type: Spontaneous
  Country: US (occurrence: US)
  Receive Date: 20160510
  Receipt Date: 20160824
  Transmission Date: 20161109
  Serious: Yes (Other)
  Sender: FDA-Public Use
  Company Number: US-BAYER-2016-089453

PATIENT
  Age: 28 Year
  Sex: Female

DRUGS (1)
  1. MIRENA [Suspect]
     Active Substance: LEVONORGESTREL
     Indication: CONTRACEPTION
     Dosage: 20 MCG/24HR, CONT
     Route: 015
     Dates: start: 20140402, end: 20151210

REACTIONS (5)
  - Genital haemorrhage [None]
  - Device breakage [None]
  - Complication of device removal [None]
  - Embedded device [None]
  - Pain [None]

NARRATIVE: CASE EVENT DATE: 20151210
